APPROVED DRUG PRODUCT: ESTROVIS
Active Ingredient: QUINESTROL
Strength: 0.2MG
Dosage Form/Route: TABLET;ORAL
Application: N016768 | Product #003
Applicant: PARKE DAVIS DIV WARNER LAMBERT CO
Approved: Approved Prior to Jan 1, 1982 | RLD: No | RS: No | Type: DISCN